FAERS Safety Report 9401915 (Version 1)
Quarter: 2013Q3

REPORT INFORMATION
  Report Type: Spontaneous
  Country: US (occurrence: US)
  Receive Date: 20130716
  Receipt Date: 20130716
  Transmission Date: 20140515
  Serious: No
  Sender: FDA-Public Use
  Company Number: US-PFIZER INC-2013205303

PATIENT
  Age: 75 Year
  Sex: Female
  Weight: 80.73 kg

DRUGS (11)
  1. NEURONTIN [Suspect]
     Indication: SCOLIOSIS
     Dosage: 300 MG, 2X/DAY
  2. NEURONTIN [Suspect]
     Indication: OSTEOPOROSIS
  3. NEURONTIN [Suspect]
     Indication: WRIST FRACTURE
  4. LYRICA [Suspect]
     Indication: SCOLIOSIS
     Dosage: UNK
  5. LYRICA [Suspect]
     Indication: OSTEOPOROSIS
  6. LYRICA [Suspect]
     Indication: WRIST FRACTURE
  7. METHADONE [Suspect]
     Indication: PAIN
     Dosage: 10 MG, 3X/DAY
     Route: 048
  8. SYNTHROID [Concomitant]
     Indication: THYROID DISORDER
     Dosage: 0.175 MG, 1X/DAY
  9. LIDODERM [Concomitant]
     Indication: PAIN
     Dosage: UNK, AS NEEDED
  10. LISINOPRIL [Concomitant]
     Indication: HYPERTENSION
     Dosage: 40 MG, 1X/DAY
  11. FLUOXETINE HYDROCHLORIDE [Concomitant]
     Indication: ABDOMINAL DISCOMFORT
     Dosage: UNK

REACTIONS (2)
  - Off label use [Unknown]
  - Drug ineffective [Unknown]
